FAERS Safety Report 4281569-7 (Version None)
Quarter: 2004Q1

REPORT INFORMATION
  Report Type: 
  Country: None (occurrence: None)
  Receive Date: 20040129
  Receipt Date: 20030729
  Transmission Date: 20041129
  Serious: Yes (Hospitalization)
  Sender: FDA-Public Use
  Company Number: PHHO2003CA09759

PATIENT
  Age: 56 Year
  Sex: Female

DRUGS (13)
  1. ERL080 [Suspect]
     Indication: RENAL TRANSPLANT
     Dosage: UNK, UNK
     Route: 048
     Dates: start: 20030726, end: 20030801
  2. NEORAL [Suspect]
     Indication: RENAL TRANSPLANT
     Dosage: 300 MG, BID
     Route: 048
     Dates: start: 20030625, end: 20030831
  3. ZOCOR [Suspect]
     Indication: HYPERLIPIDAEMIA
     Dosage: 40MG / DAY
     Route: 048
     Dates: start: 20021127, end: 20030728
  4. RANITIDINE [Concomitant]
  5. PREDNISONE [Concomitant]
     Indication: RENAL TRANSPLANT
     Dosage: 20 MG, QD
     Route: 048
  6. MYCOPHENOLATE MOFETIL [Concomitant]
     Indication: RENAL TRANSPLANT
     Dosage: 500 MG, QID
     Route: 048
  7. INSULIN [Concomitant]
  8. METOPROLOL [Concomitant]
  9. ACYCLOVIR [Concomitant]
  10. COTRIM [Concomitant]
  11. DIDROCAL [Concomitant]
  12. PLAVIX [Concomitant]
  13. ASPIRIN [Concomitant]

REACTIONS (6)
  - ALANINE AMINOTRANSFERASE INCREASED [None]
  - ASPARTATE AMINOTRANSFERASE INCREASED [None]
  - BLOOD CREATINE PHOSPHOKINASE INCREASED [None]
  - HEPATOCELLULAR DAMAGE [None]
  - MUSCULAR WEAKNESS [None]
  - RHABDOMYOLYSIS [None]
